FAERS Safety Report 7880725-6 (Version None)
Quarter: 2011Q4

REPORT INFORMATION
  Report Type: 
  Country: None (occurrence: None)
  Receive Date: 20111101
  Receipt Date: 20100830
  Transmission Date: 20120403
  Serious: No
  Sender: FDA-Public Use
  Company Number: US-BAYER-201032276NA

PATIENT
  Sex: Female
  Weight: 68.027 kg

DRUGS (4)
  1. SYNTHROID [Concomitant]
  2. ULTRAVIST 300 [Suspect]
     Indication: COMPUTERISED TOMOGRAM
     Dosage: 102 ML, UNK
     Route: 042
     Dates: start: 20100830
  3. CRESTOR [Concomitant]
  4. AMBIEN [Concomitant]

REACTIONS (1)
  - RASH [None]
